FAERS Safety Report 8269987-3 (Version None)
Quarter: 2012Q2

REPORT INFORMATION
  Report Type: 
  Country: None (occurrence: None)
  Receive Date: 20120410
  Receipt Date: 20120329
  Transmission Date: 20120825
  Serious: Yes (Other)
  Sender: FDA-Public Use
  Company Number: US-SANOFI-AVENTIS-2012SA021783

PATIENT
  Sex: Female

DRUGS (4)
  1. HUMULIN R [Suspect]
     Route: 058
  2. HUMULIN N [Suspect]
     Route: 058
  3. JANUVIA [Suspect]
     Route: 048
  4. LANTUS [Suspect]
     Dosage: DOSE:35 UNIT(S)
     Route: 058

REACTIONS (3)
  - WEIGHT DECREASED [None]
  - SYNCOPE [None]
  - CARDIAC PACEMAKER INSERTION [None]
